APPROVED DRUG PRODUCT: MIRTAZAPINE
Active Ingredient: MIRTAZAPINE
Strength: 15MG
Dosage Form/Route: TABLET, ORALLY DISINTEGRATING;ORAL
Application: A077959 | Product #001
Applicant: ACTAVIS ELIZABETH LLC
Approved: Feb 14, 2011 | RLD: No | RS: No | Type: DISCN